FAERS Safety Report 7662001-X (Version None)
Quarter: 2011Q3

REPORT INFORMATION
  Report Type: 
  Country: None (occurrence: None)
  Receive Date: 20110805
  Receipt Date: 20101206
  Transmission Date: 20111222
  Serious: No
  Sender: FDA-Public Use
  Company Number: US-ABBOTT-10P-163-0690032-00

PATIENT
  Sex: Male

DRUGS (5)
  1. ASPIRIN [Concomitant]
     Indication: CARDIAC DISORDER
     Route: 048
  2. BYSTOLIC [Concomitant]
     Indication: BLOOD PRESSURE INCREASED
     Route: 048
  3. TRIAMTERENE AND HYDROCHLOROTHIAZIDE [Concomitant]
     Indication: BLOOD PRESSURE INCREASED
     Dosage: 37.5/25 DAILY
     Route: 048
  4. NIASPAN [Suspect]
     Indication: BLOOD TRIGLYCERIDES ABNORMAL
     Route: 048
     Dates: start: 20100901
  5. EXFORGE [Concomitant]
     Indication: BLOOD PRESSURE INCREASED
     Dosage: 10/320MG DAILY
     Route: 048

REACTIONS (2)
  - PRURITUS [None]
  - SKIN BURNING SENSATION [None]
